FAERS Safety Report 10353841 (Version 1)
Quarter: 2014Q3

REPORT INFORMATION
  Report Type: Report from Study
  Country: GB (occurrence: GB)
  Receive Date: 20140731
  Receipt Date: 20140731
  Transmission Date: 20150326
  Serious: Yes (Death, Other)
  Sender: FDA-Public Use
  Company Number: GB-ROCHE-1438484

PATIENT

DRUGS (2)
  1. OXALIPLATIN. [Suspect]
     Active Substance: OXALIPLATIN
     Indication: RECTAL CANCER
     Dosage: DAY 1 AS A 2H INFUSION
     Route: 065
  2. CAPECITABINE [Suspect]
     Active Substance: CAPECITABINE
     Indication: RECTAL CANCER
     Dosage: DAYS 1-14
     Route: 048

REACTIONS (22)
  - Angina pectoris [Unknown]
  - Fatigue [Unknown]
  - Nausea [Unknown]
  - Palmar-plantar erythrodysaesthesia syndrome [Unknown]
  - Vomiting [Unknown]
  - Febrile neutropenia [Unknown]
  - Dysaesthesia [Unknown]
  - Back pain [Unknown]
  - Abdominal pain [Unknown]
  - Paraesthesia [Unknown]
  - Intestinal obstruction [Unknown]
  - Pain [Unknown]
  - Blepharospasm [Unknown]
  - Clumsiness [Unknown]
  - Fistula [Unknown]
  - Bladder dysfunction [Unknown]
  - Pulmonary embolism [Unknown]
  - Faecal incontinence [Unknown]
  - Diarrhoea [Fatal]
  - Decreased appetite [Unknown]
  - Peripheral sensory neuropathy [Unknown]
  - Neuropathy peripheral [Unknown]
